FAERS Safety Report 23988288 (Version 1)
Quarter: 2024Q2

REPORT INFORMATION
  Report Type: Spontaneous
  Country: US (occurrence: US)
  Receive Date: 20240619
  Receipt Date: 20240619
  Transmission Date: 20240716
  Serious: Yes (Other)
  Sender: FDA-Public Use
  Company Number: US-SANDOZ-SDZ2024US058438

PATIENT
  Sex: Female

DRUGS (1)
  1. VIVELLE [Suspect]
     Active Substance: ESTRADIOL
     Indication: Product used for unknown indication
     Dosage: 0.025MG/1D 8TTS
     Route: 062

REACTIONS (1)
  - Drug dependence [Unknown]
